FAERS Safety Report 25070262 (Version 1)
Quarter: 2025Q1

REPORT INFORMATION
  Report Type: Spontaneous
  Country: US (occurrence: None)
  Receive Date: 20250312
  Receipt Date: 20250312
  Transmission Date: 20250409
  Serious: No
  Sender: FDA-CTU
  Company Number: None

PATIENT
  Age: 92 Year
  Sex: Female
  Weight: 66.68 kg

DRUGS (11)
  1. ESTRADIOL [Suspect]
     Active Substance: ESTRADIOL
     Indication: Vulvovaginal dryness
     Dosage: 1 G 2 X WEEK  PLASTIC PLUUGEL INTO VAGINA ?
     Route: 050
     Dates: start: 20250213, end: 20250213
  2. Avogen - levothyroxine tab 50 mcg [Concomitant]
  3. CALAMINE [Concomitant]
     Active Substance: CALAMINE\FERRIC OXIDE RED\ZINC OXIDE
  4. triple antibiotics [Concomitant]
  5. kirkland nature multi [Concomitant]
  6. spring valley c [Concomitant]
  7. kirkland E [Concomitant]
  8. HYDROCORTISONE [Concomitant]
     Active Substance: HYDROCORTISONE
  9. vegetatl zaxative [Concomitant]
  10. ACETAMINOPHEN [Concomitant]
     Active Substance: ACETAMINOPHEN
  11. ESTRADIOL [Suspect]
     Active Substance: ESTRADIOL

REACTIONS (2)
  - Vulvovaginal pain [None]
  - Vulvovaginal burning sensation [None]

NARRATIVE: CASE EVENT DATE: 20250213
